FAERS Safety Report 8861477 (Version 1)
Quarter: 2012Q4

REPORT INFORMATION
  Report Type: Spontaneous
  Country: US (occurrence: None)
  Receive Date: 20121022
  Receipt Date: 20121022
  Transmission Date: 20130627
  Serious: Yes (Hospitalization)
  Sender: FDA-Public Use
  Company Number: UTC-024175

PATIENT
  Age: 43 Year
  Sex: Male
  Weight: 59 kg

DRUGS (1)
  1. REMODULIN [Suspect]
     Indication: PRIMARY PULMONARY HYPERTENSION
     Dosage: 14.4 ug/kg (0.01 ug/kg, 1 in 1 min), intravenous drip
     Route: 041
     Dates: start: 20121001

REACTIONS (1)
  - Haemoptysis [None]
